FAERS Safety Report 7346233-6 (Version None)
Quarter: 2011Q1

REPORT INFORMATION
  Report Type: 
  Country: None (occurrence: None)
  Receive Date: 20110311
  Receipt Date: 20110308
  Transmission Date: 20110831
  Serious: Yes (Other)
  Sender: FDA-Public Use
  Company Number: US-PFIZER INC-2011051547

PATIENT
  Sex: Male
  Weight: 81.633 kg

DRUGS (2)
  1. EFFEXOR XR [Suspect]
     Indication: ANXIETY
  2. EFFEXOR XR [Suspect]
     Indication: DEPRESSION
     Dosage: 150 MG, 1X/DAY
     Route: 048
     Dates: end: 20110301

REACTIONS (2)
  - BLOOD PRESSURE ABNORMAL [None]
  - BLOOD CHOLESTEROL ABNORMAL [None]
